FAERS Safety Report 10067627 (Version 2)
Quarter: 2014Q2

REPORT INFORMATION
  Report Type: Spontaneous
  Country: IT (occurrence: IT)
  Receive Date: 20140409
  Receipt Date: 20140623
  Transmission Date: 20141212
  Serious: Yes (Life-Threatening)
  Sender: FDA-Public Use
  Company Number: IT-TEVA-473028ISR

PATIENT
  Age: 59 Year
  Sex: Male

DRUGS (5)
  1. RIBAVIRIN [Suspect]
     Indication: HEPATITIS C
     Dosage: 400 MG DAILY
     Dates: start: 20131015, end: 20140213
  2. TELAPREVIR [Suspect]
     Indication: HEPATITIS C
     Dosage: 2250 MG DAILY
     Route: 048
     Dates: start: 20131220, end: 20140212
  3. PEG -INTERFERON ALFA 2A [Suspect]
     Indication: HEPATITIS C
     Dosage: 180 UG WEEKLY
     Dates: start: 20131015, end: 20140213
  4. METFORMIN [Concomitant]
     Indication: PRODUCT USED FOR UNKNOWN INDICATION
     Dosage: 1700 MG
  5. ACETYLSALICYLIC ACID [Concomitant]
     Indication: PRODUCT USED FOR UNKNOWN INDICATION
     Dosage: 100 MG

REACTIONS (2)
  - Eczema [Recovering/Resolving]
  - Rash generalised [Recovering/Resolving]
